FAERS Safety Report 4928452-9 (Version None)
Quarter: 2006Q1

REPORT INFORMATION
  Report Type: 
  Country: None (occurrence: None)
  Receive Date: 20060228
  Receipt Date: 20060119
  Transmission Date: 20060701
  Serious: Yes (Hospitalization)
  Sender: FDA-Public Use
  Company Number: DE-MERCK-0601DEU00091

PATIENT
  Age: 91 Year
  Sex: Female

DRUGS (2)
  1. FOSAMAX [Suspect]
     Indication: OSTEOPOROSIS
     Route: 048
     Dates: start: 20051001, end: 20060105
  2. AMANTADINE SULFATE [Concomitant]
     Route: 065

REACTIONS (2)
  - HALLUCINATION [None]
  - PSYCHOTIC DISORDER [None]
